FAERS Safety Report 6825001-5 (Version None)
Quarter: 2010Q3

REPORT INFORMATION
  Report Type: 
  Country: None (occurrence: None)
  Receive Date: 20100708
  Receipt Date: 20061208
  Transmission Date: 20110219
  Serious: No
  Sender: FDA-Public Use
  Company Number: US-PFIZER INC-2006153955

PATIENT
  Sex: Female
  Weight: 65.77 kg

DRUGS (1)
  1. CHANTIX [Suspect]
     Dates: start: 20061101, end: 20060101

REACTIONS (4)
  - DECREASED APPETITE [None]
  - GASTROENTERITIS VIRAL [None]
  - MALAISE [None]
  - NAUSEA [None]
